FAERS Safety Report 9535982 (Version 1)
Quarter: 2013Q2

REPORT INFORMATION
  Report Type: Spontaneous
  Country: US (occurrence: None)
  Receive Date: 20130507
  Receipt Date: 20130507
  Transmission Date: 20140414
  Serious: No
  Sender: FDA-Public Use
  Company Number: PHEH2012US024852

PATIENT
  Sex: Female

DRUGS (1)
  1. AFINITOR (RAD) UNKNOWN [Suspect]
     Indication: MALIGNANT NEOPLASM OF ISLETS OF LANGERHANS
     Route: 048
     Dates: start: 20120911

REACTIONS (7)
  - Synovial cyst [None]
  - Lip dry [None]
  - Chapped lips [None]
  - Pain in extremity [None]
  - Stomatitis [None]
  - Mouth ulceration [None]
  - Oedema peripheral [None]
